FAERS Safety Report 15916805 (Version 2)
Quarter: 2019Q1

REPORT INFORMATION
  Report Type: Spontaneous
  Country: GB (occurrence: GB)
  Receive Date: 20190205
  Receipt Date: 20190311
  Transmission Date: 20190417
  Serious: Yes (Hospitalization)
  Sender: FDA-Public Use
  Company Number: GB-ROCHE-2259390

PATIENT
  Age: 28 Year
  Sex: Female

DRUGS (1)
  1. RITUXIMAB. [Suspect]
     Active Substance: RITUXIMAB
     Indication: GLOMERULONEPHRITIS MINIMAL LESION
     Route: 042

REACTIONS (4)
  - Intentional product use issue [Unknown]
  - Dehydration [Unknown]
  - Maternal exposure during pregnancy [Unknown]
  - Off label use [Unknown]
